FAERS Safety Report 9176657 (Version 1)
Quarter: 2013Q1

REPORT INFORMATION
  Report Type: Report from Study
  Country: CA (occurrence: CA)
  Receive Date: 20130321
  Receipt Date: 20130321
  Transmission Date: 20140127
  Serious: Yes (Other)
  Sender: FDA-Public Use
  Company Number: CA-JNJFOC-20130308618

PATIENT
  Age: 51 Year
  Sex: Female

DRUGS (12)
  1. SIMPONI [Suspect]
     Indication: PSORIATIC ARTHROPATHY
     Route: 058
     Dates: start: 20121128, end: 20130121
  2. ATENOLOL [Concomitant]
  3. ELOCOM [Concomitant]
  4. METHOTREXATE [Concomitant]
     Route: 058
  5. INSULIN NOVORAPID [Concomitant]
     Dosage: SLIDING SCALE
     Route: 058
  6. FOLIC ACID [Concomitant]
     Dosage: EXCEPT WEDNESDAY
  7. ALTACE [Concomitant]
  8. PLAVIX [Concomitant]
  9. LASIX [Concomitant]
  10. SLOW K [Concomitant]
  11. LIPITOR [Concomitant]
  12. LEVEMIR [Concomitant]
     Route: 058

REACTIONS (1)
  - Infected skin ulcer [Recovering/Resolving]
